FAERS Safety Report 14835808 (Version 1)
Quarter: 2018Q2

REPORT INFORMATION
  Report Type: Spontaneous
  Country: US (occurrence: US)
  Receive Date: 20180502
  Receipt Date: 20180502
  Transmission Date: 20180711
  Serious: Yes (Other)
  Sender: FDA-Public Use
  Company Number: US-WEST-WARD PHARMACEUTICALS CORP.-US-H14001-18-00876

PATIENT
  Age: 45 Year
  Sex: Male

DRUGS (2)
  1. HEPARIN [Suspect]
     Active Substance: HEPARIN SODIUM
     Indication: CARDIOPULMONARY BYPASS
  2. HEPARIN [Suspect]
     Active Substance: HEPARIN SODIUM
     Indication: ANTICOAGULANT THERAPY
     Route: 065

REACTIONS (6)
  - Heparin-induced thrombocytopenia [Unknown]
  - Cyanosis [Unknown]
  - Splenic infarction [Unknown]
  - Cerebral infarction [Unknown]
  - Pulmonary embolism [Unknown]
  - Thrombosis [Unknown]
